FAERS Safety Report 6111056-2 (Version None)
Quarter: 2009Q1

REPORT INFORMATION
  Report Type: 
  Country: None (occurrence: None)
  Receive Date: 20090309
  Receipt Date: 20090309
  Transmission Date: 20090719
  Serious: No
  Sender: FDA-Public Use
  Company Number: None

PATIENT
  Age: 5 Year
  Sex: Female
  Weight: 19.9583 kg

DRUGS (1)
  1. ZYRTEC [Suspect]
     Indication: SINUS DISORDER
     Dosage: 5ML. 1/EVERY 24 HRS. PO
     Route: 048
     Dates: start: 20090304, end: 20090305

REACTIONS (4)
  - DIARRHOEA [None]
  - GAIT DISTURBANCE [None]
  - MUSCLE SPASMS [None]
  - PAIN [None]
